FAERS Safety Report 8586174-X (Version None)
Quarter: 2012Q3

REPORT INFORMATION
  Report Type: 
  Country: None (occurrence: None)
  Receive Date: 20120810
  Receipt Date: 20120731
  Transmission Date: 20120928
  Serious: Yes (Other)
  Sender: FDA-Public Use
  Company Number: FR-GLAXOSMITHKLINE-B0809427A

PATIENT
  Sex: Male

DRUGS (8)
  1. TADENAN [Concomitant]
     Indication: BENIGN PROSTATIC HYPERPLASIA
     Dosage: 50MG UNKNOWN
     Route: 048
     Dates: start: 20111001
  2. GLUCOSAMINE [Concomitant]
     Indication: OSTEOARTHRITIS
     Route: 048
  3. OXAZEPAM [Concomitant]
     Route: 048
  4. CHONDROSULF [Concomitant]
     Route: 048
  5. MIRTAZAPINE [Concomitant]
     Indication: DEPRESSION
     Route: 048
  6. AVODART [Suspect]
     Indication: BENIGN PROSTATIC HYPERPLASIA
     Dosage: .5MG PER DAY
     Route: 048
     Dates: start: 20100415, end: 20111015
  7. PROSCAR [Suspect]
     Indication: BENIGN PROSTATIC HYPERPLASIA
     Dosage: 5MG PER DAY
     Route: 048
     Dates: start: 20070601, end: 20110610
  8. ZOLPIDEM TARTRATE [Concomitant]
     Dosage: 10MG UNKNOWN
     Route: 048

REACTIONS (2)
  - GYNAECOMASTIA [None]
  - BREAST CANCER MALE [None]
